FAERS Safety Report 8816250 (Version 1)
Quarter: 2012Q4

REPORT INFORMATION
  Report Type: Spontaneous
  Country: US (occurrence: None)
  Receive Date: 20120927
  Receipt Date: 20120927
  Transmission Date: 20130627
  Serious: Yes (Other)
  Sender: FDA-Public Use
  Company Number: None

PATIENT
  Sex: Female
  Weight: 92.53 kg

DRUGS (1)
  1. ESCITALOPRAM [Suspect]
     Dosage: 10mg 1 per day po
     Route: 048

REACTIONS (4)
  - Agitation [None]
  - Feeling hot [None]
  - Hyperhidrosis [None]
  - Insomnia [None]
